FAERS Safety Report 6637121-9 (Version None)
Quarter: 2010Q1

REPORT INFORMATION
  Report Type: 
  Country: None (occurrence: None)
  Receive Date: 20100316
  Receipt Date: 20100112
  Transmission Date: 20100710
  Serious: No
  Sender: FDA-Public Use
  Company Number: US-ABBOTT-10P-163-0619447-00

PATIENT
  Sex: Male
  Weight: 129.39 kg

DRUGS (3)
  1. TRILIPIX [Suspect]
     Indication: DYSLIPIDAEMIA
     Route: 048
     Dates: start: 20090401
  2. WARFARIN SODIUM [Concomitant]
     Indication: THROMBOSIS
     Route: 048
  3. LISINOPRIL AND HYDROCHLOROTHIAZIDE [Concomitant]
     Indication: HYPERTENSION
     Route: 048

REACTIONS (1)
  - ABDOMINAL PAIN UPPER [None]
